FAERS Safety Report 20529862 (Version 1)
Quarter: 2022Q1

REPORT INFORMATION
  Report Type: Spontaneous
  Country: US (occurrence: None)
  Receive Date: 20220301
  Receipt Date: 20220301
  Transmission Date: 20220424
  Serious: No
  Sender: FDA-Public Use
  Company Number: 2022A072679

PATIENT
  Age: 27828 Day
  Sex: Female
  Weight: 50.3 kg

DRUGS (1)
  1. PULMICORT FLEXHALER [Suspect]
     Active Substance: BUDESONIDE
     Indication: Chronic obstructive pulmonary disease
     Route: 055
     Dates: start: 20220211

REACTIONS (5)
  - Respiratory disorder [Unknown]
  - Cough [Unknown]
  - Incorrect dose administered by device [Unknown]
  - Device ineffective [Unknown]
  - Device malfunction [Unknown]

NARRATIVE: CASE EVENT DATE: 20220212
